FAERS Safety Report 9838716 (Version 2)
Quarter: 2014Q4

REPORT INFORMATION
  Report Type: Spontaneous
  Country: US (occurrence: None)
  Receive Date: 20131206
  Receipt Date: 20141209
  Transmission Date: 20150529
  Serious: Yes (Other)
  Sender: FDA-Public Use
  Company Number: 386114

PATIENT
  Age: 60 Year
  Sex: Female
  Weight: 108.8 kg

DRUGS (8)
  1. METFORMIN [Concomitant]
     Active Substance: METFORMIN HYDROCHLORIDE
  2. NOVOLOG [Suspect]
     Active Substance: INSULIN ASPART
     Indication: TYPE 2 DIABETES MELLITUS
     Dosage: 20 UNITS, QD AT NIGHT
     Dates: start: 2009
  3. SINGLULAIR (MONTELUKAST SODIUM) [Concomitant]
  4. BENICAR HCT [Concomitant]
     Active Substance: HYDROCHLOROTHIAZIDE\OLMESARTAN MEDOXOMIL
  5. BUPROPION HCL (BUPROPION HYDROCHLORIDE) [Concomitant]
  6. LANTUS [Suspect]
     Active Substance: INSULIN GLARGINE
     Indication: TYPE 2 DIABETES MELLITUS
     Dosage: 80 UNITS, QD, SUBCUTANEOUS
     Route: 058
     Dates: start: 2007
  7. ANTI-INFLAMMATORY (DICLOFENAC SODIUM) [Concomitant]
  8. FUROSEMIDE (FUROSEMIDE) [Concomitant]
     Active Substance: FUROSEMIDE

REACTIONS (3)
  - Blood glucose decreased [None]
  - Wrong drug administered [None]
  - Blood glucose increased [None]

NARRATIVE: CASE EVENT DATE: 201304
